FAERS Safety Report 5047745-0 (Version None)
Quarter: 2006Q3

REPORT INFORMATION
  Report Type: 
  Country: None (occurrence: None)
  Receive Date: 20060710
  Receipt Date: 20060710
  Transmission Date: 20061208
  Serious: Yes (Disabling)
  Sender: FDA-Public Use
  Company Number: None

PATIENT
  Sex: Male
  Weight: 83.2804 kg

DRUGS (12)
  1. SILDENAFIL CITRATE [Suspect]
     Dosage: 25 MG  AS NEEDED  ORAL
     Route: 048
     Dates: start: 20050614, end: 20060302
  2. ACCU-CHEK COMFORT CV (GLUCOSE) TEST STRIP [Concomitant]
  3. CITALOPRAM HYDROBROMIDE [Concomitant]
  4. GLYBURIDE [Concomitant]
  5. LISINOPRIL [Concomitant]
  6. LORATADINE [Concomitant]
  7. MELOXICAM [Concomitant]
  8. METFORMIN HYDROCHLORIDE [Concomitant]
  9. METOPROLOL TARTRATE [Concomitant]
  10. RANITIDINE HCL [Concomitant]
  11. SILDENAFIL CITRATE [Concomitant]
  12. SIMVASTATIN [Concomitant]

REACTIONS (2)
  - RETINAL VEIN OCCLUSION [None]
  - VISION BLURRED [None]
